FAERS Safety Report 5889004-X (Version None)
Quarter: 2008Q3

REPORT INFORMATION
  Report Type: 
  Country: None (occurrence: None)
  Receive Date: 20080917
  Receipt Date: 20080917
  Transmission Date: 20090109
  Serious: Yes (Death)
  Sender: FDA-Public Use
  Company Number: None

PATIENT
  Age: 66 Year
  Sex: Male
  Weight: 136.9863 kg

DRUGS (1)
  1. DIGITEK 0.25MG [Suspect]
     Dosage: 1 TABLET DAILY PO
     Route: 048

REACTIONS (3)
  - HYPOTENSION [None]
  - PHARMACEUTICAL PRODUCT COMPLAINT [None]
  - THERAPEUTIC AGENT TOXICITY [None]
